FAERS Safety Report 11490865 (Version 2)
Quarter: 2015Q3

REPORT INFORMATION
  Report Type: Spontaneous
  Country: FR (occurrence: FR)
  Receive Date: 20150910
  Receipt Date: 20150921
  Transmission Date: 20151125
  Serious: Yes (Death)
  Sender: FDA-Public Use
  Company Number: FR-PFIZER INC-2015297613

PATIENT
  Age: 3 Week
  Sex: Male

DRUGS (9)
  1. GENTAMICINE PANPHARMA [Suspect]
     Active Substance: GENTAMICIN
     Indication: ANTIBIOTIC THERAPY
     Dosage: UNK
     Route: 042
     Dates: start: 20150307, end: 20150309
  2. TRIFLUCAN [Suspect]
     Active Substance: FLUCONAZOLE
     Indication: INFECTION PROPHYLAXIS
     Dosage: UNK, 2X/WEEK
     Route: 065
     Dates: start: 20150307, end: 20150326
  3. CEFOTAXIME [Suspect]
     Active Substance: CEFOTAXIME SODIUM
     Indication: ANTIBIOTIC THERAPY
     Dosage: UNK
     Route: 042
     Dates: start: 20150307, end: 20150309
  4. MAGIC MIX [Concomitant]
     Indication: REGURGITATION
     Dosage: UNK
     Dates: end: 20150402
  5. CAFEINE [Suspect]
     Active Substance: CAFFEINE
     Indication: APNOEA NEONATAL
     Dosage: LOADING DOSE THEN DAILY MAINTENANCE DOSE
     Route: 048
     Dates: start: 20150307
  6. LIQUIGEN [Concomitant]
     Active Substance: MEDIUM-CHAIN TRIGLYCERIDES
     Dosage: 0.2 ML, 8X/DAY
     Dates: start: 20150331, end: 20150402
  7. RIFAMYCINE CHIBRET [Suspect]
     Active Substance: RIFAMYCIN
     Indication: INFECTION PROPHYLAXIS
     Dosage: UNK
     Route: 047
     Dates: start: 20150307
  8. AMOXICILLINE ARROW [Suspect]
     Active Substance: AMOXICILLIN
     Indication: ANTIBIOTIC THERAPY
     Dosage: UNK
     Route: 042
     Dates: start: 20150307, end: 20150309
  9. VITAMIN K1 [Suspect]
     Active Substance: PHYTONADIONE
     Indication: HAEMORRHAGE PROPHYLAXIS
     Dosage: 1 DF, SINGLE
     Route: 048
     Dates: start: 20150307, end: 20150307

REACTIONS (1)
  - Necrotising enterocolitis neonatal [Fatal]

NARRATIVE: CASE EVENT DATE: 20150401
